FAERS Safety Report 24606064 (Version 1)
Quarter: 2024Q4

REPORT INFORMATION
  Report Type: Report from Study
  Country: IN (occurrence: IN)
  Receive Date: 20241112
  Receipt Date: 20241112
  Transmission Date: 20250115
  Serious: Yes (Death, Hospitalization)
  Sender: AMGEN
  Company Number: IN-AMGEN-INDSL2024205952

PATIENT
  Age: 53 Year
  Sex: Male

DRUGS (1)
  1. REPATHA [Suspect]
     Active Substance: EVOLOCUMAB
     Indication: Hyperlipidaemia
     Dosage: 140 MILLIGRAM
     Route: 058
     Dates: start: 20200517, end: 20240917

REACTIONS (2)
  - Cardiac arrest [Fatal]
  - Chest pain [Unknown]

NARRATIVE: CASE EVENT DATE: 20241010
